FAERS Safety Report 16332711 (Version 1)
Quarter: 2019Q2

REPORT INFORMATION
  Report Type: Spontaneous
  Country: US (occurrence: US)
  Receive Date: 20190520
  Receipt Date: 20190520
  Transmission Date: 20190711
  Serious: No
  Sender: FDA-Public Use
  Company Number: US-TARO-2019TAR00189

PATIENT
  Age: 66 Year
  Sex: Female
  Weight: 77.1 kg

DRUGS (2)
  1. CARBAMAZEPINE EXTENDED RELEASE TABLETS USP 200MG [Suspect]
     Active Substance: CARBAMAZEPINE
     Indication: INSOMNIA
     Dosage: 400 MG, 1X/DAY
     Route: 048
     Dates: start: 20190129, end: 201902
  2. CARBAMAZEPINE EXTENDED RELEASE TABLETS USP 200MG [Suspect]
     Active Substance: CARBAMAZEPINE
     Indication: AFFECTIVE DISORDER

REACTIONS (6)
  - Inappropriate schedule of product administration [Recovered/Resolved]
  - Abdominal pain upper [Recovered/Resolved]
  - Product substitution issue [Recovered/Resolved]
  - Gastrooesophageal reflux disease [Recovered/Resolved]
  - Drug ineffective for unapproved indication [Recovered/Resolved]
  - Insomnia [Recovered/Resolved]

NARRATIVE: CASE EVENT DATE: 2019
